FAERS Safety Report 8145121-5 (Version None)
Quarter: 2012Q1

REPORT INFORMATION
  Report Type: 
  Country: None (occurrence: None)
  Receive Date: 20120217
  Receipt Date: 20120214
  Transmission Date: 20120608
  Serious: Yes (Other)
  Sender: FDA-Public Use
  Company Number: PHHY2011BR108301

PATIENT
  Sex: Male
  Weight: 86 kg

DRUGS (5)
  1. DIOVAN [Suspect]
     Indication: HYPERTENSION
     Dosage: 1 DF, (320MG) DAILY
     Route: 048
     Dates: start: 20080101, end: 20090101
  2. DIOVAN [Suspect]
     Dosage: 1 DF, (320MG) DAILY
     Dates: start: 20111209
  3. ASPIRIN [Concomitant]
     Indication: PROPHYLAXIS
     Dosage: 1 DF, (100MG) BID (MORNING AND NIGHT)
     Route: 048
     Dates: start: 20111209
  4. HYDANPHEN [Concomitant]
     Indication: HYPERTENSION
     Dosage: 1 DF, (1.5MG) DAILY
     Route: 048
     Dates: start: 20080101
  5. AMLODIPINE [Concomitant]
     Indication: HYPERTENSION
     Dosage: 1 DF, (5MG) BID (MORNING AND NIGHT)
     Route: 048
     Dates: start: 20080101

REACTIONS (9)
  - BLOOD PRESSURE FLUCTUATION [None]
  - CHEST PAIN [None]
  - ENCEPHALITIS [None]
  - HEADACHE [None]
  - HYPOAESTHESIA [None]
  - BLOOD CHOLESTEROL INCREASED [None]
  - MALAISE [None]
  - HEART RATE INCREASED [None]
  - BLOOD TRIGLYCERIDES INCREASED [None]
